FAERS Safety Report 6194563-6 (Version None)
Quarter: 2009Q2

REPORT INFORMATION
  Report Type: 
  Country: None (occurrence: None)
  Receive Date: 20090515
  Receipt Date: 20090406
  Transmission Date: 20091009
  Serious: Yes (Hospitalization)
  Sender: FDA-Public Use
  Company Number: WAES 0811FRA00059

PATIENT
  Age: 60 Year
  Sex: Female

DRUGS (7)
  1. JANUVIA [Suspect]
     Indication: TYPE 2 DIABETES MELLITUS
     Dosage: 100 MG/DAILY PO
     Route: 048
     Dates: start: 20080725, end: 20081109
  2. (THERAPY UNSPECIFIED) [Concomitant]
  3. CALCIUM CARBONATE (+) CHOLECALCIFEROL [Concomitant]
  4. DIACEREIN [Concomitant]
  5. LERCANIDIPINE [Concomitant]
  6. LEVOTHYROXINE SODIUM [Concomitant]
  7. METFORMIN HCL [Concomitant]

REACTIONS (1)
  - IDIOPATHIC THROMBOCYTOPENIC PURPURA [None]
